FAERS Safety Report 18267656 (Version 1)
Quarter: 2020Q3

REPORT INFORMATION
  Report Type: Spontaneous
  Country: US (occurrence: US)
  Receive Date: 20200914
  Receipt Date: 20200914
  Transmission Date: 20201103
  Serious: Yes (Death)
  Sender: FDA-Public Use
  Company Number: None

PATIENT
  Age: 75 Year
  Sex: Female

DRUGS (9)
  1. CYCLOBENZAPR [Suspect]
     Active Substance: CYCLOBENZAPRINE
  2. FENOFIBRATE. [Suspect]
     Active Substance: FENOFIBRATE
  3. LOSARTAN POT [Suspect]
     Active Substance: LOSARTAN POTASSIUM
  4. MELOXICAM. [Suspect]
     Active Substance: MELOXICAM
  5. OMEPRA/BICAR [Concomitant]
  6. ESBRIET [Suspect]
     Active Substance: PIRFENIDONE
     Indication: IDIOPATHIC PULMONARY FIBROSIS
     Dosage: ?          OTHER DOSE:1 TAB;?
     Route: 048
     Dates: start: 20180404, end: 20200904
  7. TIZANIDINE. [Concomitant]
     Active Substance: TIZANIDINE
  8. JANUVIA [Suspect]
     Active Substance: SITAGLIPTIN PHOSPHATE
  9. ATORVASTATIN [Suspect]
     Active Substance: ATORVASTATIN

REACTIONS (1)
  - Death [None]

NARRATIVE: CASE EVENT DATE: 20200904
